FAERS Safety Report 7066956-6 (Version None)
Quarter: 2010Q4

REPORT INFORMATION
  Report Type: 
  Country: None (occurrence: None)
  Receive Date: 20101028
  Receipt Date: 20101019
  Transmission Date: 20110411
  Serious: No
  Sender: FDA-Public Use
  Company Number: US-BIOGENIDEC-2010BI032514

PATIENT
  Sex: Female

DRUGS (1)
  1. TYSABRI [Suspect]
     Indication: MULTIPLE SCLEROSIS
     Route: 042
     Dates: start: 20090604

REACTIONS (9)
  - MICTURITION URGENCY [None]
  - PAIN IN EXTREMITY [None]
  - POLLAKIURIA [None]
  - RESPIRATORY TRACT CONGESTION [None]
  - SENSORY DISTURBANCE [None]
  - URINARY RETENTION [None]
  - URINARY TRACT INFECTION [None]
  - VULVOVAGINAL MYCOTIC INFECTION [None]
  - VULVOVAGINAL PRURITUS [None]
